FAERS Safety Report 9677442 (Version 1)
Quarter: 2013Q4

REPORT INFORMATION
  Report Type: Spontaneous
  Country: US (occurrence: US)
  Receive Date: 20131108
  Receipt Date: 20131108
  Transmission Date: 20140711
  Serious: No
  Sender: FDA-Public Use
  Company Number: US-ENDO PHARMACEUTICALS INC.-MEPE20120001

PATIENT
  Sex: Male

DRUGS (3)
  1. MEPERIDINE HYDROCHLORIDE TABLETS 100MG [Suspect]
     Indication: PAIN
     Dosage: 100 MG
     Route: 048
  2. OPANA ER [Concomitant]
     Dosage: UNKNOWN
     Route: 048
  3. OPANA ER [Concomitant]
     Dosage: UNKNOWN

REACTIONS (1)
  - Drug ineffective [Not Recovered/Not Resolved]
